FAERS Safety Report 23400436 (Version 1)
Quarter: 2024Q1

REPORT INFORMATION
  Report Type: Spontaneous
  Country: US (occurrence: US)
  Receive Date: 20240115
  Receipt Date: 20240115
  Transmission Date: 20240409
  Serious: Yes (Hospitalization, Other)
  Sender: FDA-Public Use
  Company Number: US-BRISTOL-MYERS SQUIBB COMPANY-2024-003592

PATIENT
  Age: 78 Year
  Sex: Female
  Weight: 58.06 kg

DRUGS (30)
  1. REVLIMID [Suspect]
     Active Substance: LENALIDOMIDE
     Indication: Plasma cell myeloma
     Dosage: INDUCTION
     Dates: start: 20221119
  2. REVLIMID [Suspect]
     Active Substance: LENALIDOMIDE
     Dates: start: 20221207, end: 20230329
  3. REVLIMID [Suspect]
     Active Substance: LENALIDOMIDE
     Dosage: (MAINTENANCE THERAPY)
     Dates: start: 20230412, end: 202309
  4. REVLIMID [Suspect]
     Active Substance: LENALIDOMIDE
     Dosage: TAKE 1 CAPSULE BY MOUTH, TAKE QD FOR THREE WEEKS, THEN DO NOT TAKE FOR ONE WEEK.
     Route: 048
     Dates: end: 20231016
  5. REVLIMID [Suspect]
     Active Substance: LENALIDOMIDE
     Dosage: TAKE ON DAYS 1-21 OF EACH 28-DAY CYCLE. TAKE WHOLE WITH WATER AT THE SAME TIME EACH DAY.
     Route: 048
  6. DEXAMETHASONE [Suspect]
     Active Substance: DEXAMETHASONE
     Indication: Plasma cell myeloma
     Dosage: INDUCTION
     Dates: start: 20221119
  7. DEXAMETHASONE [Suspect]
     Active Substance: DEXAMETHASONE
     Dates: start: 20221207, end: 20230329
  8. DEXAMETHASONE [Suspect]
     Active Substance: DEXAMETHASONE
     Dosage: (MAINTENANCE THERAPY)
     Dates: start: 20230412, end: 202309
  9. DEXAMETHASONE [Suspect]
     Active Substance: DEXAMETHASONE
     Dosage: 4 MG EVERY WEEKDAY
     Route: 048
  10. VELCADE [Suspect]
     Active Substance: BORTEZOMIB
     Indication: Plasma cell myeloma
     Dosage: INDUCTION
     Dates: start: 20221119
  11. VELCADE [Suspect]
     Active Substance: BORTEZOMIB
     Dates: start: 20221207, end: 20230329
  12. DARZALEX [Suspect]
     Active Substance: DARATUMUMAB
     Indication: Plasma cell myeloma
     Dates: start: 20221207, end: 20230329
  13. DARZALEX [Suspect]
     Active Substance: DARATUMUMAB
     Dosage: MAINTENANCE THERAPY
     Dates: start: 20230412, end: 202309
  14. ZOVIRAX [Concomitant]
     Active Substance: ACYCLOVIR
     Indication: Infection prophylaxis
     Route: 048
     Dates: end: 20231022
  15. ESOMEPRAZOLE [Concomitant]
     Active Substance: ESOMEPRAZOLE
     Indication: Product used for unknown indication
     Dosage: 1 CAPSULE DELAYED RELEASE ORALLY DAILY
     Route: 048
  16. RIVAROXABAN [Concomitant]
     Active Substance: RIVAROXABAN
     Indication: Product used for unknown indication
     Dosage: 1 TABLET ORALLY DAILY, MUST ADMINISTER WITH A MEAL/FOOD.
     Route: 048
  17. TRAMADOL [Concomitant]
     Active Substance: TRAMADOL\TRAMADOL HYDROCHLORIDE
     Indication: Pain
     Dosage: 0.5 TABLET ORALLY EVERY 12 HOURS AS NEEDED FOR PAIN (SCALE SCORE 4-6)
     Route: 048
  18. BIOTIN [Concomitant]
     Active Substance: BIOTIN
     Indication: Product used for unknown indication
     Route: 048
  19. VITAMINS [Concomitant]
     Active Substance: VITAMINS
     Indication: Product used for unknown indication
     Route: 048
  20. REPATHA [Concomitant]
     Active Substance: EVOLOCUMAB
     Indication: Product used for unknown indication
     Dosage: 140 MG/ML PEN INJECTOR
     Route: 058
  21. VITAMIN B12 [Concomitant]
     Active Substance: CYANOCOBALAMIN
     Indication: Product used for unknown indication
     Route: 048
  22. ZOMETA [Concomitant]
     Active Substance: ZOLEDRONIC ACID
     Indication: Metastases to bone
     Dates: start: 20221116
  23. LIPITOR [Concomitant]
     Active Substance: ATORVASTATIN CALCIUM
     Indication: Dyslipidaemia
     Route: 048
     Dates: start: 202301, end: 20231022
  24. BIOTIN [Concomitant]
     Active Substance: BIOTIN
     Indication: Product used for unknown indication
     Route: 048
     Dates: end: 20231022
  25. SYNTHROID [Concomitant]
     Active Substance: LEVOTHYROXINE SODIUM
     Indication: Product used for unknown indication
     Route: 048
     Dates: end: 20231022
  26. TYLENOL [Concomitant]
     Active Substance: ACETAMINOPHEN
     Indication: Product used for unknown indication
     Route: 048
  27. ASPIRIN [Concomitant]
     Active Substance: ASPIRIN
     Indication: Product used for unknown indication
     Route: 048
     Dates: end: 20231022
  28. ECOTRIN [Concomitant]
     Active Substance: ASPIRIN
     Indication: Product used for unknown indication
     Route: 048
  29. COREG [Concomitant]
     Active Substance: CARVEDILOL
     Indication: Product used for unknown indication
     Route: 048
     Dates: end: 20231022
  30. ZETIA [Concomitant]
     Active Substance: EZETIMIBE
     Indication: Product used for unknown indication
     Route: 048
     Dates: end: 20231022

REACTIONS (11)
  - Pulmonary embolism [Unknown]
  - Urinary tract infection [Unknown]
  - Cellulitis [Unknown]
  - Orthostatic hypotension [Unknown]
  - Hypokalaemia [Unknown]
  - Myalgia [Unknown]
  - Fall [Unknown]
  - Syncope [Unknown]
  - Injury [Unknown]
  - Traumatic fracture [Unknown]
  - Skin abrasion [Unknown]

NARRATIVE: CASE EVENT DATE: 20231001
